FAERS Safety Report 8638546 (Version 3)
Quarter: 2012Q4

REPORT INFORMATION
  Report Type: Report from Study
  Country: AU (occurrence: AU)
  Receive Date: 20120627
  Receipt Date: 20121019
  Transmission Date: 20130627
  Serious: Yes (Hospitalization)
  Sender: FDA-Public Use
  Company Number: AU-JNJFOC-20120509110

PATIENT
  Age: 71 Year
  Sex: Male
  Weight: 59.5 kg

DRUGS (56)
  1. ABIRATERONE ACETATE [Suspect]
     Route: 048
  2. ABIRATERONE ACETATE [Suspect]
     Indication: PROSTATE CANCER METASTATIC
     Route: 048
     Dates: start: 20120403, end: 20120610
  3. PREDNISOLONE [Suspect]
     Indication: PROSTATE CANCER METASTATIC
     Route: 048
     Dates: start: 20120403
  4. FENTANYL [Suspect]
     Indication: BACK PAIN
     Route: 062
     Dates: start: 20120505, end: 20120505
  5. MAXOLON [Concomitant]
     Indication: VOMITING
     Route: 065
     Dates: start: 20120505, end: 20120506
  6. MAXOLON [Concomitant]
     Indication: VOMITING
     Route: 065
     Dates: start: 20120513, end: 20120514
  7. MAXOLON [Concomitant]
     Indication: VOMITING
     Route: 065
     Dates: start: 20120531, end: 20120531
  8. MAXOLON [Concomitant]
     Indication: VOMITING
     Route: 065
     Dates: start: 20120523, end: 20120524
  9. MAXOLON [Concomitant]
     Indication: VOMITING
     Route: 065
     Dates: start: 20120526, end: 20120526
  10. MAXOLON [Concomitant]
     Indication: VOMITING
     Route: 065
     Dates: start: 20120528, end: 20120528
  11. MAXOLON [Concomitant]
     Indication: VOMITING
     Route: 065
     Dates: start: 20120530, end: 20120530
  12. MAXOLON [Concomitant]
     Indication: NAUSEA
     Route: 065
     Dates: start: 20120505, end: 20120506
  13. MAXOLON [Concomitant]
     Indication: NAUSEA
     Route: 065
     Dates: start: 20120513, end: 20120514
  14. MAXOLON [Concomitant]
     Indication: NAUSEA
     Route: 065
     Dates: start: 20120526, end: 20120526
  15. MAXOLON [Concomitant]
     Indication: NAUSEA
     Route: 065
     Dates: start: 20120528, end: 20120528
  16. MAXOLON [Concomitant]
     Indication: NAUSEA
     Route: 065
     Dates: start: 20120530, end: 20120530
  17. MAXOLON [Concomitant]
     Indication: NAUSEA
     Route: 065
     Dates: start: 20120531, end: 20120531
  18. MAXOLON [Concomitant]
     Indication: NAUSEA
     Route: 065
     Dates: start: 20120523, end: 20120524
  19. MAXOLON [Concomitant]
     Indication: BACK PAIN
     Route: 065
     Dates: start: 20120530, end: 20120530
  20. MAXOLON [Concomitant]
     Indication: BACK PAIN
     Route: 065
     Dates: start: 20120528, end: 20120528
  21. MAXOLON [Concomitant]
     Indication: BACK PAIN
     Route: 065
     Dates: start: 20120526, end: 20120526
  22. MAXOLON [Concomitant]
     Indication: BACK PAIN
     Route: 065
     Dates: start: 20120523, end: 20120524
  23. MAXOLON [Concomitant]
     Indication: BACK PAIN
     Route: 065
     Dates: start: 20120513, end: 20120514
  24. MAXOLON [Concomitant]
     Indication: BACK PAIN
     Route: 065
     Dates: start: 20120505, end: 20120506
  25. MAXOLON [Concomitant]
     Indication: BACK PAIN
     Route: 065
     Dates: start: 20120531, end: 20120531
  26. ELIGARD [Concomitant]
     Indication: HORMONE THERAPY
     Route: 065
     Dates: start: 2010
  27. MORPHINE [Concomitant]
     Indication: BACK PAIN
     Route: 058
     Dates: start: 20120505, end: 20120505
  28. DEXAMETHASONE [Concomitant]
     Indication: BACK PAIN
     Route: 065
     Dates: start: 20120505, end: 20120507
  29. CLEXANE [Concomitant]
     Indication: VOMITING
     Route: 065
     Dates: start: 20120513, end: 20120514
  30. CLEXANE [Concomitant]
     Indication: VOMITING
     Route: 065
     Dates: start: 20120505, end: 20120506
  31. CLEXANE [Concomitant]
     Indication: NAUSEA
     Route: 065
     Dates: start: 20120505, end: 20120506
  32. CLEXANE [Concomitant]
     Indication: NAUSEA
     Route: 065
     Dates: start: 20120513, end: 20120514
  33. CLEXANE [Concomitant]
     Indication: BACK PAIN
     Route: 065
     Dates: start: 20120513, end: 20120514
  34. CLEXANE [Concomitant]
     Indication: BACK PAIN
     Route: 065
     Dates: start: 20120505, end: 20120506
  35. VALIUM [Concomitant]
     Indication: BACK PAIN
     Route: 065
     Dates: start: 20120505, end: 20120505
  36. NORMAL SALINE [Concomitant]
     Indication: NAUSEA
     Route: 065
     Dates: start: 20120514, end: 20120514
  37. NORMAL SALINE [Concomitant]
     Indication: NAUSEA
     Route: 065
     Dates: start: 20120513, end: 20120513
  38. NORMAL SALINE [Concomitant]
     Indication: NAUSEA
     Route: 065
     Dates: start: 20120530, end: 20120531
  39. NORMAL SALINE [Concomitant]
     Indication: NAUSEA
     Route: 065
     Dates: start: 20120528, end: 20120528
  40. NORMAL SALINE [Concomitant]
     Indication: NAUSEA
     Route: 065
     Dates: start: 20120523, end: 20120525
  41. NORMAL SALINE [Concomitant]
     Indication: VOMITING
     Route: 065
     Dates: start: 20120513, end: 20120513
  42. NORMAL SALINE [Concomitant]
     Indication: VOMITING
     Route: 065
     Dates: start: 20120514, end: 20120514
  43. NORMAL SALINE [Concomitant]
     Indication: VOMITING
     Route: 065
     Dates: start: 20120523, end: 20120525
  44. NORMAL SALINE [Concomitant]
     Indication: VOMITING
     Route: 065
     Dates: start: 20120528, end: 20120528
  45. NORMAL SALINE [Concomitant]
     Indication: VOMITING
     Route: 065
     Dates: start: 20120530, end: 20120531
  46. HARTMANNS [Concomitant]
     Indication: NAUSEA
     Route: 065
     Dates: start: 20120515, end: 20120515
  47. HARTMANNS [Concomitant]
     Indication: VOMITING
     Route: 065
     Dates: start: 20120515, end: 20120515
  48. NORFLOXACIN [Concomitant]
     Indication: NAUSEA
     Route: 065
     Dates: start: 20120513, end: 20120514
  49. NORFLOXACIN [Concomitant]
     Indication: VOMITING
     Route: 065
     Dates: start: 20120513, end: 20120514
  50. ASPIRIN [Concomitant]
     Indication: NAUSEA
     Route: 065
     Dates: start: 20120513, end: 20120515
  51. ASPIRIN [Concomitant]
     Indication: VOMITING
     Route: 065
     Dates: start: 20120513, end: 20120515
  52. ENDONE [Concomitant]
     Indication: BACK PAIN
     Route: 065
     Dates: start: 20120505, end: 20120505
  53. ONDANSETRON [Concomitant]
     Indication: VOMITING
     Route: 065
     Dates: start: 20120531
  54. ONDANSETRON [Concomitant]
     Indication: VOMITING
     Route: 065
     Dates: start: 20120528, end: 20120528
  55. ONDANSETRON [Concomitant]
     Indication: NAUSEA
     Route: 065
     Dates: start: 20120531
  56. ONDANSETRON [Concomitant]
     Indication: NAUSEA
     Route: 065
     Dates: start: 20120528, end: 20120528

REACTIONS (11)
  - Back pain [Recovering/Resolving]
  - Nausea [Recovered/Resolved]
  - Vomiting [Recovered/Resolved]
  - Nausea [Recovered/Resolved]
  - Vomiting [Recovered/Resolved]
  - Nausea [Not Recovered/Not Resolved]
  - Vomiting [Not Recovered/Not Resolved]
  - Nausea [Recovered/Resolved]
  - Vomiting [Recovered/Resolved]
  - Vomiting [Recovered/Resolved]
  - Nausea [Recovered/Resolved]
